APPROVED DRUG PRODUCT: POTASSIUM CHLORIDE
Active Ingredient: POTASSIUM CHLORIDE
Strength: 20MEQ
Dosage Form/Route: TABLET, EXTENDED RELEASE;ORAL
Application: A214395 | Product #002 | TE Code: AB1
Applicant: GUANGZHOU NOVAKEN PHARM CO LTD
Approved: Jan 28, 2021 | RLD: No | RS: No | Type: RX